FAERS Safety Report 20114075 (Version 2)
Quarter: 2022Q1

REPORT INFORMATION
  Report Type: Other
  Country: EG (occurrence: None)
  Receive Date: 20211125
  Receipt Date: 20220106
  Transmission Date: 20220423
  Serious: Yes (Other)
  Sender: FDA-Public Use
  Company Number: EG-ROCHE-2960475

PATIENT

DRUGS (4)
  1. TOCILIZUMAB [Suspect]
     Active Substance: TOCILIZUMAB
     Indication: COVID-19
     Dosage: ONLY 2 DOSES
     Route: 042
  2. TOCILIZUMAB [Suspect]
     Active Substance: TOCILIZUMAB
     Indication: Cytokine storm
  3. REMDESIVIR [Suspect]
     Active Substance: REMDESIVIR
     Indication: COVID-19
     Dosage: ON DAY 1
     Route: 042
  4. REMDESIVIR [Suspect]
     Active Substance: REMDESIVIR
     Indication: Cytokine storm
     Dosage: DAILY INFUSED OVER 60 MIN FOR 5 DAYS
     Route: 042

REACTIONS (2)
  - Pulmonary embolism [Unknown]
  - Myocarditis [Unknown]
